FAERS Safety Report 18869349 (Version 1)
Quarter: 2021Q1

REPORT INFORMATION
  Report Type: Spontaneous
  Country: US (occurrence: US)
  Receive Date: 20210210
  Receipt Date: 20210210
  Transmission Date: 20210420
  Serious: No
  Sender: FDA-Public Use
  Company Number: US-SA-2021SA042562

PATIENT
  Sex: Female

DRUGS (1)
  1. DUPIXENT [Suspect]
     Active Substance: DUPILUMAB
     Indication: DERMATITIS ATOPIC
     Dosage: 300 MG, QOW
     Route: 058
     Dates: start: 20201218

REACTIONS (5)
  - Sensitive skin [Unknown]
  - Injection site discomfort [Unknown]
  - Injection site erythema [Unknown]
  - Injection site reaction [Unknown]
  - Pruritus [Unknown]

NARRATIVE: CASE EVENT DATE: 2020
